FAERS Safety Report 17565754 (Version 1)
Quarter: 2020Q1

REPORT INFORMATION
  Report Type: Spontaneous
  Country: DK (occurrence: DK)
  Receive Date: 20200320
  Receipt Date: 20200320
  Transmission Date: 20200409
  Serious: Yes (Hospitalization)
  Sender: FDA-Public Use
  Company Number: DK-MYLANLABS-2020M1028655

PATIENT
  Age: 44 Year
  Sex: Female
  Weight: 298 kg

DRUGS (14)
  1. LAKTULOSE [Concomitant]
     Indication: CONSTIPATION
     Dosage: STYRKE: 600 MG/ML, DOSIS: 15 ML EFTER BEHOV H?JST 2 GANGE DAGLIG
     Route: 048
     Dates: start: 202001
  2. ARIPIPRAZOLE. [Suspect]
     Active Substance: ARIPIPRAZOLE
     Indication: SCHIZOPHRENIA
     Dosage: STYRKE: 10 MG, 15 MG. DOSIS: OP TIL 30 MG I D?GNET.
     Route: 048
     Dates: start: 2009
  3. AIROMIR                            /00139501/ [Concomitant]
     Active Substance: ALBUTEROL
     Indication: ASTHMA
     Dosage: STYRKE: 0.1 MG/DOSIS, DOSIS: 4 PUST EFTER BEHOV H?JST 6 GANGE DAGLIG
     Route: 055
     Dates: start: 202001
  4. VENTOLINE                          /00139501/ [Concomitant]
     Active Substance: ALBUTEROL
     Indication: ASTHMA
     Dosage: STYRKE: 0.2 MG/DISKOS
     Route: 055
     Dates: start: 202002
  5. PALIPERIDONE. [Suspect]
     Active Substance: PALIPERIDONE
     Indication: SCHIZOPHRENIA
     Dosage: STYRKE: 3 MG DOSIS: AKTUELT 3 MG DAGLIGT
     Route: 048
  6. LASIX [Concomitant]
     Active Substance: FUROSEMIDE
     Indication: DIURETIC THERAPY
     Dosage: STYRKE: 60 MG
     Route: 048
     Dates: start: 202001
  7. FLIXOTIDE [Concomitant]
     Active Substance: FLUTICASONE PROPIONATE
     Indication: ASTHMA
     Dosage: STYRKE: 250 ?G/DOSIS
     Route: 055
     Dates: start: 202001
  8. PANODIL [Concomitant]
     Active Substance: ACETAMINOPHEN
     Indication: PAIN
     Dosage: STYRKE: 500 MG
     Route: 048
     Dates: start: 202001
  9. KALEORID [Concomitant]
     Active Substance: POTASSIUM CHLORIDE
     Indication: MINERAL SUPPLEMENTATION
     Dosage: STYRKE: 750 MG
     Route: 048
     Dates: start: 202001
  10. SALBUTAMOL [Concomitant]
     Active Substance: ALBUTEROL
     Indication: BRONCHOSPASM
     Dosage: STYRKE: 1 MG/ML
     Dates: start: 202001
  11. SPIOLTO RESPIMAT [Concomitant]
     Active Substance: OLODATEROL HYDROCHLORIDE\TIOTROPIUM BROMIDE MONOHYDRATE
     Indication: ASTHMA
     Dosage: STYRKE: 2.5+2.5 ?G
     Route: 055
     Dates: start: 202001
  12. ELTROXIN [Concomitant]
     Active Substance: LEVOTHYROXINE
     Indication: HYPOTHYROIDISM
     Dosage: STYRKE: 50 ?G
     Route: 048
     Dates: start: 202001
  13. PANTOPRAZOLE [Concomitant]
     Active Substance: PANTOPRAZOLE
     Indication: GASTROOESOPHAGEAL REFLUX DISEASE
     Dosage: STYRKE: 20 MG
     Route: 048
     Dates: start: 202001
  14. NICORETTE CLASSIC                  /01033301/ [Concomitant]
     Indication: SMOKING CESSATION THERAPY
     Dosage: STYRKE: 4 MG, DOSIS: 1 TYGGEGUMMI EFTER BEHOV H?JST 24 GANGE DAGLIGT
     Route: 048
     Dates: start: 2019

REACTIONS (3)
  - Pickwickian syndrome [Not Recovered/Not Resolved]
  - Weight increased [Not Recovered/Not Resolved]
  - Dyspnoea [Not Recovered/Not Resolved]
